FAERS Safety Report 9681619 (Version 3)
Quarter: 2015Q2

REPORT INFORMATION
  Report Type: Report from Study
  Country: US (occurrence: US)
  Receive Date: 20131111
  Receipt Date: 20150501
  Transmission Date: 20150821
  Serious: Yes (Hospitalization, Other)
  Sender: FDA-Public Use
  Company Number: US-SA-LEUK-1000148

PATIENT
  Sex: Male
  Weight: 102.3 kg

DRUGS (37)
  1. SARGRAMOSTIM [Suspect]
     Active Substance: SARGRAMOSTIM
     Indication: MALIGNANT MELANOMA
     Dosage: 250 MCG, QD
     Route: 058
     Dates: start: 20110408, end: 20110421
  2. IPILIMUMAB [Suspect]
     Active Substance: IPILIMUMAB
     Indication: MALIGNANT MELANOMA
     Dosage: TOTAL DOSE: 1160 MG
     Route: 042
     Dates: start: 20111210
  3. HUMALOG [Concomitant]
     Active Substance: INSULIN LISPRO
     Dosage: 100 U, PRN DOSE:100 UNIT(S)
     Route: 059
  4. LANTUS [Concomitant]
     Active Substance: INSULIN GLARGINE
     Dosage: 82 U, QD DOSE:82 UNIT(S)
     Route: 059
  5. SARGRAMOSTIM [Suspect]
     Active Substance: SARGRAMOSTIM
     Indication: MALIGNANT MELANOMA
     Dosage: 250 MCG, QD
     Route: 058
     Dates: start: 20110923, end: 20111006
  6. SARGRAMOSTIM [Suspect]
     Active Substance: SARGRAMOSTIM
     Indication: MALIGNANT MELANOMA
     Dosage: 250 MCG, QD
     Route: 058
     Dates: start: 20110805, end: 20110818
  7. HUMALOG [Concomitant]
     Active Substance: INSULIN LISPRO
     Dosage: 10 U, UNK DOSE:10 UNIT(S)
     Route: 065
  8. METOPROLOL [Concomitant]
     Active Substance: METOPROLOL
     Dosage: 75 MG, QD
     Route: 048
  9. PLAVIX [Concomitant]
     Active Substance: CLOPIDOGREL BISULFATE
     Dosage: 75 MG, QD
     Route: 048
  10. SARGRAMOSTIM [Suspect]
     Active Substance: SARGRAMOSTIM
     Indication: MALIGNANT MELANOMA
     Dosage: 250 MCG, QD
     Route: 058
     Dates: start: 20110624, end: 20110707
  11. IPILIMUMAB [Suspect]
     Active Substance: IPILIMUMAB
     Indication: MALIGNANT MELANOMA
     Dosage: 10 MG/KG, ONCE
     Route: 042
     Dates: start: 20110318, end: 20120408
  12. KLOR-CON [Concomitant]
     Active Substance: POTASSIUM CHLORIDE
     Dosage: 20 MEQ, QD
     Route: 048
  13. LANTUS [Concomitant]
     Active Substance: INSULIN GLARGINE
     Dosage: 75 U, QD DOSE:75 UNIT(S)
     Route: 059
  14. ONDANSETRON [Concomitant]
     Active Substance: ONDANSETRON
     Dosage: 8 MG, TID
     Route: 048
  15. SARGRAMOSTIM [Suspect]
     Active Substance: SARGRAMOSTIM
     Indication: MALIGNANT MELANOMA
     Dosage: 250 MCG, QD
     Route: 058
     Dates: start: 20110429, end: 20110512
  16. SARGRAMOSTIM [Suspect]
     Active Substance: SARGRAMOSTIM
     Indication: MALIGNANT MELANOMA
     Dosage: 250 MCG, QD
     Route: 058
     Dates: start: 20110715, end: 20110728
  17. LANTUS [Concomitant]
     Active Substance: INSULIN GLARGINE
     Dosage: 70 U, QD DOSE:70 UNIT(S)
     Route: 065
  18. FUROSEMIDE. [Concomitant]
     Active Substance: FUROSEMIDE
     Route: 065
  19. HYDROCODONE [Concomitant]
     Active Substance: HYDROCODONE
     Dosage: 5-500 1-2 TABS PO
     Route: 048
  20. SARGRAMOSTIM [Suspect]
     Active Substance: SARGRAMOSTIM
     Indication: MALIGNANT MELANOMA
     Dosage: 250 MCG, QD
     Route: 058
     Dates: start: 20110318, end: 20110331
  21. SARGRAMOSTIM [Suspect]
     Active Substance: SARGRAMOSTIM
     Indication: MALIGNANT MELANOMA
     Dosage: 250 MCG, QD
     Route: 058
     Dates: start: 20110520, end: 20110602
  22. SARGRAMOSTIM [Suspect]
     Active Substance: SARGRAMOSTIM
     Indication: MALIGNANT MELANOMA
     Dosage: 250 MCG, QD
     Route: 058
     Dates: start: 20121207, end: 20121228
  23. IPILIMUMAB [Suspect]
     Active Substance: IPILIMUMAB
     Indication: MALIGNANT MELANOMA
     Dosage: 10 MG/KG
     Route: 042
     Dates: start: 20110520, end: 20110520
  24. IPILIMUMAB [Suspect]
     Active Substance: IPILIMUMAB
     Indication: MALIGNANT MELANOMA
     Dosage: 10 MG/KG, QD (10TH CYCLE)
     Route: 042
     Dates: end: 20121228
  25. LISINOPRIL. [Concomitant]
     Active Substance: LISINOPRIL
     Dosage: 20 MG, QD
     Route: 048
  26. NIASPAN [Concomitant]
     Active Substance: NIACIN
     Dosage: 1000 MG, QD
     Route: 048
  27. HYDROCORTISONE. [Concomitant]
     Active Substance: HYDROCORTISONE
     Dosage: 60 MG, QD
     Route: 048
  28. SARGRAMOSTIM [Suspect]
     Active Substance: SARGRAMOSTIM
     Indication: MALIGNANT MELANOMA
     Dosage: TOTAL DOSE: 3.5 MG
     Route: 058
     Dates: start: 20111210
  29. SPIRIVA [Concomitant]
     Active Substance: TIOTROPIUM BROMIDE MONOHYDRATE
     Route: 065
  30. FISH OIL [Concomitant]
     Active Substance: FISH OIL
     Dosage: 1 TABLET, QD
     Route: 065
  31. SARGRAMOSTIM [Suspect]
     Active Substance: SARGRAMOSTIM
     Indication: MALIGNANT MELANOMA
     Dosage: 250 MCG, QD
     Route: 058
     Dates: start: 20110610, end: 20110623
  32. SARGRAMOSTIM [Suspect]
     Active Substance: SARGRAMOSTIM
     Indication: MALIGNANT MELANOMA
     Dosage: 250 MCG, QD
     Route: 058
     Dates: start: 20110826, end: 20110908
  33. IPILIMUMAB [Suspect]
     Active Substance: IPILIMUMAB
     Indication: MALIGNANT MELANOMA
     Dosage: 10 MG/KG
     Route: 042
     Dates: start: 20110812, end: 20110812
  34. ASPIRIN. [Concomitant]
     Active Substance: ASPIRIN
     Route: 065
  35. ASPIRIN. [Concomitant]
     Active Substance: ASPIRIN
     Dosage: 325 MG, QD
     Route: 048
  36. PLAVIX [Concomitant]
     Active Substance: CLOPIDOGREL BISULFATE
     Route: 065
  37. SPIRIVA [Concomitant]
     Active Substance: TIOTROPIUM BROMIDE MONOHYDRATE
     Dosage: 18 MCG, INHALED DAILY
     Route: 065

REACTIONS (18)
  - Decreased appetite [Recovered/Resolved with Sequelae]
  - Fatigue [Unknown]
  - Pain in extremity [Unknown]
  - Rash [Unknown]
  - Joint range of motion decreased [Unknown]
  - Lymphocyte count increased [Recovered/Resolved]
  - Dehydration [Recovered/Resolved with Sequelae]
  - Diarrhoea [Recovered/Resolved]
  - Fall [Recovered/Resolved with Sequelae]
  - Peripheral swelling [Unknown]
  - Oedema peripheral [Not Recovered/Not Resolved]
  - Peripheral sensory neuropathy [Not Recovered/Not Resolved]
  - Dizziness [Recovered/Resolved]
  - Dysgeusia [Recovered/Resolved]
  - Blood creatinine increased [Unknown]
  - Hyperglycaemia [Unknown]
  - Blood uric acid increased [Unknown]
  - Muscular weakness [Unknown]

NARRATIVE: CASE EVENT DATE: 20110408
